FAERS Safety Report 7840823-X (Version None)
Quarter: 2011Q4

REPORT INFORMATION
  Report Type: 
  Country: None (occurrence: None)
  Receive Date: 20111021
  Receipt Date: 20111021
  Transmission Date: 20120403
  Serious: Yes (Other)
  Sender: FDA-Public Use
  Company Number: None

PATIENT
  Sex: Male
  Weight: 92.7 kg

DRUGS (2)
  1. ONDANSETRON [Suspect]
     Indication: VOMITING
     Dosage: 8MG Q6H PRN IV
     Route: 042
     Dates: start: 20111005, end: 20111010
  2. ONDANSETRON [Suspect]
     Indication: NAUSEA
     Dosage: 8MG Q6H PRN IV
     Route: 042
     Dates: start: 20111005, end: 20111010

REACTIONS (1)
  - ELECTROCARDIOGRAM QT PROLONGED [None]
